FAERS Safety Report 15300338 (Version 1)
Quarter: 2018Q4

REPORT INFORMATION
  Report Type: Spontaneous
  Country: NL (occurrence: NL)
  Receive Date: 20180821
  Receipt Date: 20180821
  Transmission Date: 20190204
  Serious: Yes (Other)
  Sender: FDA-Public Use
  Company Number: NL-HIKMA PHARMACEUTICALS USA INC.-NL-H14001-18-06956

PATIENT
  Age: 80 Year
  Sex: Female
  Weight: 95 kg

DRUGS (1)
  1. MILRINON [Suspect]
     Active Substance: MILRINONE LACTATE
     Indication: CARDIAC FAILURE
     Dosage: 1 MG/MG; 0,25UG/KG/MIN
     Dates: start: 20180712, end: 20180713

REACTIONS (4)
  - Infusion site erythema [Recovering/Resolving]
  - Somnolence [Recovering/Resolving]
  - Infusion site vesicles [Recovering/Resolving]
  - Pharyngeal oedema [Recovering/Resolving]

NARRATIVE: CASE EVENT DATE: 20180712
